FAERS Safety Report 19581383 (Version 2)
Quarter: 2021Q3

REPORT INFORMATION
  Report Type: Spontaneous
  Country: CA (occurrence: CA)
  Receive Date: 20210719
  Receipt Date: 20210830
  Transmission Date: 20211014
  Serious: Yes (Congenital Anomaly)
  Sender: FDA-Public Use
  Company Number: CA-BAUSCH-BL-2021-025150

PATIENT
  Age: 34 Year
  Sex: Female
  Weight: 61.29 kg

DRUGS (1)
  1. NIDAGEL VAGINAL GEL [Suspect]
     Active Substance: METRONIDAZOLE
     Indication: VAGINAL INFECTION
     Route: 067
     Dates: start: 20210403, end: 20210707

REACTIONS (3)
  - Maternal exposure during pregnancy [Unknown]
  - Contraindicated product administered [Unknown]
  - Prenatal screening test abnormal [Unknown]
